FAERS Safety Report 5572527-0 (Version None)
Quarter: 2007Q4

REPORT INFORMATION
  Report Type: 
  Country: None (occurrence: None)
  Receive Date: 20071222
  Receipt Date: 20071212
  Transmission Date: 20080405
  Serious: Yes (Other)
  Sender: FDA-Public Use
  Company Number: US-PFIZER INC-2007106218

PATIENT
  Sex: Female
  Weight: 74.8 kg

DRUGS (4)
  1. CHANTIX [Suspect]
     Indication: SMOKING CESSATION THERAPY
     Dates: start: 20070601, end: 20071001
  2. QUINAPRIL HCL [Concomitant]
  3. TRIAMTERENE [Concomitant]
  4. LOVASTATIN [Concomitant]

REACTIONS (8)
  - DYSGEUSIA [None]
  - DYSPHORIA [None]
  - INTENTIONAL DRUG MISUSE [None]
  - LUNG NEOPLASM MALIGNANT [None]
  - MALAISE [None]
  - PAROSMIA [None]
  - STOMACH DISCOMFORT [None]
  - SURGERY [None]
